FAERS Safety Report 6239718-7 (Version None)
Quarter: 2009Q2

REPORT INFORMATION
  Report Type: 
  Country: None (occurrence: None)
  Receive Date: 20090619
  Receipt Date: 20090608
  Transmission Date: 20091009
  Serious: Yes (Death)
  Sender: FDA-Public Use
  Company Number: GBPFL-S-20080010

PATIENT
  Age: 63 Year
  Sex: Male
  Weight: 88 kg

DRUGS (4)
  1. NAVELBINE [Suspect]
     Indication: NON-SMALL CELL LUNG CANCER
     Dosage: 26 MG IV
     Route: 042
     Dates: start: 20051229, end: 20060315
  2. CISPLATIN [Suspect]
     Indication: LUNG SQUAMOUS CELL CARCINOMA STAGE II
     Dosage: 100 MG IV
     Route: 042
     Dates: start: 20051229, end: 20060315
  3. DIGOXIN [Concomitant]
  4. ATENOLOL [Concomitant]

REACTIONS (4)
  - AORTIC OCCLUSION [None]
  - CEREBROVASCULAR ACCIDENT [None]
  - COAGULOPATHY [None]
  - FALL [None]
